FAERS Safety Report 10896221 (Version 1)
Quarter: 2015Q1

REPORT INFORMATION
  Report Type: Report from Study
  Country: US (occurrence: US)
  Receive Date: 20150309
  Receipt Date: 20150309
  Transmission Date: 20150721
  Serious: Yes (Other)
  Sender: FDA-Public Use
  Company Number: US-ROCHE-1076296

PATIENT

DRUGS (8)
  1. FILGRASTIM [Concomitant]
     Active Substance: FILGRASTIM
     Route: 065
  2. RITUXIMAB [Suspect]
     Active Substance: RITUXIMAB
     Indication: DIFFUSE LARGE B-CELL LYMPHOMA
     Route: 042
  3. PEGFILGRASTIM [Concomitant]
     Active Substance: PEGFILGRASTIM
     Route: 065
  4. VORINOSTAT [Suspect]
     Active Substance: VORINOSTAT
     Indication: DIFFUSE LARGE B-CELL LYMPHOMA
     Dosage: AT DOSES OF 300MG/D OR 400MG/D
     Route: 048
  5. ETOPOSIDE. [Suspect]
     Active Substance: ETOPOSIDE
     Indication: DIFFUSE LARGE B-CELL LYMPHOMA
     Dosage: ON DAY 1
     Route: 042
  6. ETOPOSIDE. [Suspect]
     Active Substance: ETOPOSIDE
     Dosage: ON DAY 2 AND 3
     Route: 042
  7. PREDNISONE. [Suspect]
     Active Substance: PREDNISONE
     Indication: DIFFUSE LARGE B-CELL LYMPHOMA
     Route: 048
  8. CYCLOPHOSPHAMIDE. [Suspect]
     Active Substance: CYCLOPHOSPHAMIDE
     Indication: DIFFUSE LARGE B-CELL LYMPHOMA
     Dosage: DAY 1, 8
     Route: 042

REACTIONS (28)
  - Hyperglycaemia [Unknown]
  - Oedema peripheral [Unknown]
  - Haemorrhage [Unknown]
  - Thrombocytopenia [Unknown]
  - Anaemia [Unknown]
  - Hypercalcaemia [Unknown]
  - Leukopenia [Unknown]
  - Infection [Unknown]
  - Cerebral ischaemia [Unknown]
  - Embolism [Unknown]
  - International normalised ratio [Unknown]
  - Hypotension [Unknown]
  - Activated partial thromboplastin time abnormal [Unknown]
  - Lymphopenia [Unknown]
  - Hypokalaemia [Unknown]
  - Febrile neutropenia [Unknown]
  - Diarrhoea [Unknown]
  - Neutropenia [Unknown]
  - Hypophosphataemia [Unknown]
  - Thrombosis [Unknown]
  - Dyspnoea [Unknown]
  - Arrhythmia [Unknown]
  - Oesophagitis [Unknown]
  - Fatigue [Unknown]
  - Hyponatraemia [Unknown]
  - Hypoxia [Unknown]
  - Dehydration [Unknown]
  - Hyperkalaemia [Unknown]
